FAERS Safety Report 13331751 (Version 1)
Quarter: 2017Q1

REPORT INFORMATION
  Report Type: Spontaneous
  Country: US (occurrence: US)
  Receive Date: 20170314
  Receipt Date: 20170314
  Transmission Date: 20170428
  Serious: No
  Sender: FDA-Public Use
  Company Number: US-JNJFOC-20170120224

PATIENT
  Age: 56 Year
  Sex: Female
  Weight: 77.11 kg

DRUGS (2)
  1. CHILDRENS TYLENOL [Suspect]
     Active Substance: ACETAMINOPHEN
     Indication: PAIN IN EXTREMITY
     Dosage: 3 TEASPOON ONE TIME; AS NEEDED
     Route: 048
     Dates: end: 20170120
  2. VERAPAMIL [Concomitant]
     Active Substance: VERAPAMIL HYDROCHLORIDE
     Indication: BLOOD PRESSURE MEASUREMENT
     Route: 065

REACTIONS (8)
  - Expired product administered [Recovered/Resolved]
  - Drug administered to patient of inappropriate age [Recovered/Resolved]
  - Belligerence [Recovered/Resolved]
  - Affect lability [Recovered/Resolved]
  - Emotional distress [Recovered/Resolved]
  - Agitation [Recovered/Resolved]
  - Incorrect product storage [Recovered/Resolved]
  - Aggression [Recovered/Resolved]
